FAERS Safety Report 5189938-8 (Version None)
Quarter: 2006Q4

REPORT INFORMATION
  Report Type: 
  Country: None (occurrence: None)
  Receive Date: 20061215
  Receipt Date: 20061201
  Transmission Date: 20070319
  Serious: Yes (Hospitalization)
  Sender: FDA-Public Use
  Company Number: 2006SP005013

PATIENT
  Age: 52 Year
  Sex: Female
  Weight: 38 kg

DRUGS (13)
  1. TEMOZOLOMIDE (S-P) (TEMOZOLOMIDE) [Suspect]
     Indication: METASTASES TO CENTRAL NERVOUS SYSTEM
     Dosage: 110 MG; QD; PO
     Route: 048
     Dates: start: 20060925, end: 20061014
  2. IPRATROPIUM (CON.) [Concomitant]
  3. SALBUTAMOL (CON.) [Concomitant]
  4. ACETYLSALICYLATE (CON.) [Concomitant]
  5. PANTOPRAZOLE (CON.) [Concomitant]
  6. DICLOFENAC (CON.) [Concomitant]
  7. ALPRAZOLAM (CON.) [Concomitant]
  8. FORTECORTIN (CON.) [Concomitant]
  9. METOCLOPRAMID (CON.) [Concomitant]
  10. BISACODYL (CON.) [Concomitant]
  11. NOZINAN (CON.) [Concomitant]
  12. VALTREX (CON.) [Concomitant]
  13. RADIATION THERAPY (CON.) [Concomitant]

REACTIONS (6)
  - AGITATION [None]
  - CONFUSIONAL STATE [None]
  - DYSKINESIA [None]
  - MEMORY IMPAIRMENT [None]
  - PERSONALITY CHANGE [None]
  - TREMOR [None]
